FAERS Safety Report 19573319 (Version 1)
Quarter: 2021Q3

REPORT INFORMATION
  Report Type: Other
  Country: US (occurrence: US)
  Receive Date: 20210717
  Receipt Date: 20210717
  Transmission Date: 20211014
  Serious: Yes (Other)
  Sender: FDA-Public Use
  Company Number: US-ROCHE-2870685

PATIENT
  Sex: Male

DRUGS (1)
  1. VALGANCICLOVIR. [Suspect]
     Active Substance: VALGANCICLOVIR
     Indication: LUNG TRANSPLANT
     Dosage: 450MG 2 TABLETS QD
     Route: 048

REACTIONS (2)
  - Off label use [Unknown]
  - Pulmonary arterial hypertension [Unknown]
